FAERS Safety Report 5443237-5 (Version None)
Quarter: 2007Q3

REPORT INFORMATION
  Report Type: 
  Country: None (occurrence: None)
  Receive Date: 20070830
  Receipt Date: 20070815
  Transmission Date: 20080115
  Serious: Yes (Hospitalization, Other)
  Sender: FDA-Public Use
  Company Number: 2007US-09491

PATIENT
  Age: 78 Year
  Sex: Male

DRUGS (5)
  1. ISOPTIN SR [Suspect]
     Indication: DRUG USE FOR UNKNOWN INDICATION
     Dosage: 240 MG, QD, ORAL
     Route: 048
     Dates: end: 20070419
  2. ENALAPRIL MALEATE              (ENALAPRIL) [Suspect]
     Indication: DRUG USE FOR UNKNOWN INDICATION
     Dosage: 20 MG, QD, ORAL
     Route: 048
     Dates: end: 20070419
  3. CLOPIDOGREL SULPHATE                 UNKNOWN [Concomitant]
  4. ZOCOR FORTE                           (SIMVASTATIN) UNKNOWN [Concomitant]
  5. MIOL [Concomitant]

REACTIONS (5)
  - DRUG INTERACTION [None]
  - HYPERKALAEMIA [None]
  - HYPOTENSION [None]
  - RENAL FAILURE ACUTE [None]
  - SYNCOPE [None]
